FAERS Safety Report 15395692 (Version 2)
Quarter: 2018Q4

REPORT INFORMATION
  Report Type: Spontaneous
  Country: US (occurrence: US)
  Receive Date: 20180918
  Receipt Date: 20181025
  Transmission Date: 20190204
  Serious: No
  Sender: FDA-Public Use
  Company Number: US-GILEAD-2018-0362769

PATIENT
  Age: 32 Year
  Sex: Male
  Weight: 90.25 kg

DRUGS (1)
  1. VEMLIDY [Suspect]
     Active Substance: TENOFOVIR ALAFENAMIDE FUMARATE
     Indication: HEPATITIS C
     Dosage: 25 MG, UNK
     Route: 048
     Dates: start: 201707

REACTIONS (1)
  - Product dose omission [Recovered/Resolved]
